FAERS Safety Report 4299125-3 (Version None)
Quarter: 2004Q1

REPORT INFORMATION
  Report Type: 
  Country: None (occurrence: None)
  Receive Date: 20040217
  Receipt Date: 20040204
  Transmission Date: 20041129
  Serious: Yes (Life-Threatening, Other)
  Sender: FDA-Public Use
  Company Number: ZONI001318

PATIENT
  Age: 28 Year
  Sex: Female

DRUGS (1)
  1. ZONEGRAN [Suspect]
     Indication: NEUROPATHIC PAIN
     Dosage: 100 MG DAILY ORAL
     Route: 048
     Dates: start: 20030101

REACTIONS (1)
  - STEVENS-JOHNSON SYNDROME [None]
